FAERS Safety Report 9276549 (Version 1)
Quarter: 2013Q2

REPORT INFORMATION
  Report Type: Spontaneous
  Country: US (occurrence: US)
  Receive Date: 20130507
  Receipt Date: 20130507
  Transmission Date: 20140414
  Serious: Yes (Hospitalization)
  Sender: FDA-Public Use
  Company Number: US-BAYER-2013-055935

PATIENT
  Age: 29 Year
  Sex: Female

DRUGS (7)
  1. YASMIN [Suspect]
  2. METHYLPREDNISOLONE [Concomitant]
     Dosage: UNK
     Dates: start: 20080118
  3. COLACE [Concomitant]
  4. MIACALCIN [Concomitant]
  5. PERCOCET [Concomitant]
  6. REMERON [Concomitant]
  7. PRENATAL VITAMINS [Concomitant]

REACTIONS (1)
  - Pulmonary embolism [None]
